FAERS Safety Report 4628180-3 (Version None)
Quarter: 2005Q2

REPORT INFORMATION
  Report Type: 
  Country: None (occurrence: None)
  Receive Date: 20050401
  Receipt Date: 20050321
  Transmission Date: 20051028
  Serious: Yes (Hospitalization)
  Sender: FDA-Public Use
  Company Number: HQWYE340624MAR05

PATIENT
  Age: 47 Year
  Sex: Female

DRUGS (13)
  1. EFFEXOR [Suspect]
     Indication: SCHIZOAFFECTIVE DISORDER
     Dosage: 225-375 MG; ORAL
     Route: 048
     Dates: start: 20020301, end: 20041026
  2. EFFEXOR [Suspect]
     Dosage: 450 MG 1X PER 1 DAY; ORAL (SEE IMAGE)
     Route: 048
     Dates: start: 20041027, end: 20041104
  3. EFFEXOR [Suspect]
     Dosage: 450 MG 1X PER 1 DAY; ORAL (SEE IMAGE)
     Route: 048
     Dates: start: 20041105, end: 20041220
  4. EFFEXOR [Suspect]
     Dosage: 450 MG 1X PER 1 DAY; ORAL (SEE IMAGE)
     Route: 048
     Dates: start: 20041221, end: 20050111
  5. EFFEXOR [Suspect]
     Dosage: 450 MG 1X PER 1 DAY; ORAL (SEE IMAGE)
     Route: 048
     Dates: start: 20050112
  6. SEROQUEL [Suspect]
     Dosage: 200-400 MG; ORAL (SEE IMAGE)
     Route: 048
     Dates: start: 20041027, end: 20041030
  7. SEROQUEL [Suspect]
     Dosage: 200-400 MG; ORAL (SEE IMAGE)
     Route: 048
     Dates: start: 20041031, end: 20041130
  8. SEROQUEL [Suspect]
     Dosage: 200-400 MG; ORAL (SEE IMAGE)
     Route: 048
     Dates: start: 20041201, end: 20041206
  9. SEROQUEL [Suspect]
     Dosage: 200-400 MG; ORAL (SEE IMAGE)
     Route: 048
     Dates: start: 20041207
  10. ORFIRIL (VALPROATE SODIUM) [Concomitant]
  11. ATORVASTATIN CALCIUM [Concomitant]
  12. PAROXETINE HCL [Concomitant]
  13. LORAZEPAM [Concomitant]

REACTIONS (5)
  - AGGRESSION [None]
  - AGITATION [None]
  - DEPRESSIVE DELUSION [None]
  - HYPOTHYROIDISM [None]
  - POSTPARTUM HYPOPITUITARISM [None]
